FAERS Safety Report 5512424-X (Version None)
Quarter: 2007Q4

REPORT INFORMATION
  Report Type: 
  Country: None (occurrence: None)
  Receive Date: 20071112
  Receipt Date: 20061026
  Transmission Date: 20080405
  Serious: Yes (Other)
  Sender: FDA-Public Use
  Company Number: A0625089A

PATIENT

DRUGS (2)
  1. AVANDAMET [Suspect]
     Route: 048
  2. STATINS [Concomitant]

REACTIONS (2)
  - BLOOD LACTIC ACID INCREASED [None]
  - HEPATIC ENZYME INCREASED [None]
